FAERS Safety Report 7602556-4 (Version None)
Quarter: 2011Q3

REPORT INFORMATION
  Report Type: 
  Country: None (occurrence: None)
  Receive Date: 20110712
  Receipt Date: 20110630
  Transmission Date: 20111222
  Serious: Yes (Other)
  Sender: FDA-Public Use
  Company Number: US-CELGENEUS-163-21660-11070694

PATIENT
  Sex: Female

DRUGS (4)
  1. ABRAXANE [Suspect]
     Route: 065
  2. ZOLEDRONIC ACID [Suspect]
     Route: 065
  3. GOSERELIN [Suspect]
     Route: 065
  4. BEVACIZUMAB [Suspect]
     Route: 065

REACTIONS (1)
  - CYSTOID MACULAR OEDEMA [None]
